FAERS Safety Report 23728078 (Version 1)
Quarter: 2024Q2

REPORT INFORMATION
  Report Type: Spontaneous
  Country: US (occurrence: US)
  Receive Date: 20240410
  Receipt Date: 20240410
  Transmission Date: 20240716
  Serious: Yes (Other)
  Sender: FDA-Public Use
  Company Number: US-SA-SAC20240409000996

PATIENT
  Sex: Male

DRUGS (24)
  1. DUPIXENT [Suspect]
     Active Substance: DUPILUMAB
     Indication: Neurodermatitis
     Dosage: 300 MG, QOW
     Route: 058
  2. AMLODIPINE BESYLATE [Concomitant]
     Active Substance: AMLODIPINE BESYLATE
  3. DOXYCYCLINE [Concomitant]
     Active Substance: DOXYCYCLINE
  4. TRELEGY ELLIPTA [Concomitant]
     Active Substance: FLUTICASONE FUROATE\UMECLIDINIUM BROMIDE\VILANTEROL TRIFENATATE
  5. ALBUTEROL SULFATE [Concomitant]
     Active Substance: ALBUTEROL SULFATE
  6. ALLOPURINOL [Concomitant]
     Active Substance: ALLOPURINOL
  7. AMLODIPINE BESYLATE [Concomitant]
     Active Substance: AMLODIPINE BESYLATE
  8. AMOXICILLIN [Concomitant]
     Active Substance: AMOXICILLIN
     Dosage: 500 MG AS NEEDED
  9. BROVANA [Concomitant]
     Active Substance: ARFORMOTEROL TARTRATE
  10. BUDESONIDE [Concomitant]
     Active Substance: BUDESONIDE
  11. CARVEDILOL [Concomitant]
     Active Substance: CARVEDILOL
  12. JARDIANCE [Concomitant]
     Active Substance: EMPAGLIFLOZIN
  13. LATANOPROST [Concomitant]
     Active Substance: LATANOPROST
  14. LIDOCAINE [Concomitant]
     Active Substance: LIDOCAINE
  15. OXYCODONE HYDROCHLORIDE [Concomitant]
     Active Substance: OXYCODONE HYDROCHLORIDE
  16. ROSUVASTATIN [Concomitant]
     Active Substance: ROSUVASTATIN
  17. SANDOSTATIN [Concomitant]
     Active Substance: OCTREOTIDE ACETATE
  18. TAMSULOSIN HYDROCHLORIDE [Concomitant]
     Active Substance: TAMSULOSIN HYDROCHLORIDE
  19. VITAMIN B12 [Concomitant]
     Active Substance: CYANOCOBALAMIN
  20. VITAMIN C [Concomitant]
     Active Substance: ASCORBIC ACID
  21. VITAMIN D3 [Concomitant]
     Active Substance: CHOLECALCIFEROL
  22. DICLOFENAC [Concomitant]
     Active Substance: DICLOFENAC
  23. XANAX [Concomitant]
     Active Substance: ALPRAZOLAM
  24. YUPELRI [Concomitant]
     Active Substance: REVEFENACIN

REACTIONS (6)
  - Neoplasm malignant [Unknown]
  - Diabetes mellitus [Unknown]
  - Gastrooesophageal reflux disease [Unknown]
  - Nausea [Unknown]
  - Blood pressure measurement [Unknown]
  - Nasopharyngitis [Unknown]
